FAERS Safety Report 9082846 (Version 1)
Quarter: 2013Q1

REPORT INFORMATION
  Report Type: Report from Study
  Country: PR (occurrence: PR)
  Receive Date: 20130130
  Receipt Date: 20130130
  Transmission Date: 20140127
  Serious: No
  Sender: FDA-Public Use
  Company Number: PR-ABBOTT-12P-131-0925221-00

PATIENT
  Age: 72 None
  Sex: Female
  Weight: 63.56 kg

DRUGS (4)
  1. HUMIRA 40 MG/ 0.8 ML PRE-FILLED SYRINGE [Suspect]
     Indication: PSORIASIS
     Route: 058
     Dates: start: 2011, end: 201204
  2. HUMIRA 40 MG/ 0.8 ML PRE-FILLED SYRINGE [Suspect]
     Route: 058
     Dates: start: 201204, end: 201208
  3. NORVASC [Concomitant]
     Indication: HYPERTENSION
     Route: 048
  4. SYNTHYROID [Concomitant]
     Indication: THYROID DISORDER
     Route: 048

REACTIONS (3)
  - Cough [Recovering/Resolving]
  - Nasopharyngitis [Recovered/Resolved]
  - Nasopharyngitis [Recovering/Resolving]
